FAERS Safety Report 24903542 (Version 1)
Quarter: 2025Q1

REPORT INFORMATION
  Report Type: Spontaneous
  Country: US (occurrence: US)
  Receive Date: 20250130
  Receipt Date: 20250130
  Transmission Date: 20250409
  Serious: Yes (Other)
  Sender: ALKEM
  Company Number: US-ALKEM LABORATORIES LIMITED-US-ALKEM-2024-23256

PATIENT

DRUGS (4)
  1. ATORVASTATIN [Suspect]
     Active Substance: ATORVASTATIN
     Indication: Primary biliary cholangitis
     Dosage: 40 MILLIGRAM, OD
     Route: 065
  2. ATORVASTATIN [Suspect]
     Active Substance: ATORVASTATIN
     Indication: Biliary cirrhosis
  3. ELAFIBRANOR [Suspect]
     Active Substance: ELAFIBRANOR
     Indication: Primary biliary cholangitis
     Route: 065
  4. ELAFIBRANOR [Suspect]
     Active Substance: ELAFIBRANOR
     Indication: Biliary cirrhosis

REACTIONS (1)
  - Rhabdomyolysis [Unknown]
